FAERS Safety Report 7824941-8 (Version None)
Quarter: 2011Q4

REPORT INFORMATION
  Report Type: 
  Country: None (occurrence: None)
  Receive Date: 20111019
  Receipt Date: 20110303
  Transmission Date: 20120403
  Serious: No
  Sender: FDA-Public Use
  Company Number: US-BRISTOL-MYERS SQUIBB COMPANY-15587496

PATIENT
  Age: 56 Year
  Sex: Female

DRUGS (9)
  1. AVALIDE [Suspect]
     Dosage: THERAPY STARTED ON 2003 OR 2004
  2. METOPROLOL TARTRATE [Concomitant]
  3. FLUOXETINE [Concomitant]
  4. DICLOFENAC [Concomitant]
  5. EFFEXOR [Concomitant]
  6. KLOR-CON [Concomitant]
  7. ACTOS [Concomitant]
  8. LOVAZA [Concomitant]
  9. ZEGERID [Concomitant]

REACTIONS (1)
  - HYPERTENSION [None]
